FAERS Safety Report 20847750 (Version 1)
Quarter: 2022Q2

REPORT INFORMATION
  Report Type: Spontaneous
  Country: JP (occurrence: None)
  Receive Date: 20220519
  Receipt Date: 20220519
  Transmission Date: 20220721
  Serious: Yes (Death)
  Sender: FDA-Public Use
  Company Number: JP-Unichem Pharmaceuticals (USA) Inc-UCM202205-000444

PATIENT
  Age: 66 Year
  Sex: Male

DRUGS (1)
  1. ZONISAMIDE [Suspect]
     Active Substance: ZONISAMIDE
     Indication: Hypoaesthesia
     Dosage: UNKNOWN

REACTIONS (7)
  - Cytomegalovirus enterocolitis [Fatal]
  - Human herpesvirus 6 infection reactivation [Fatal]
  - Pneumonia [Fatal]
  - Shock [Fatal]
  - Respiratory failure [Fatal]
  - Drug reaction with eosinophilia and systemic symptoms [Fatal]
  - Product use in unapproved indication [Unknown]
